FAERS Safety Report 12555643 (Version 1)
Quarter: 2016Q3

REPORT INFORMATION
  Report Type: Spontaneous
  Country: US (occurrence: None)
  Receive Date: 20160713
  Receipt Date: 20160713
  Transmission Date: 20161109
  Serious: Yes (Hospitalization)
  Sender: FDA-Public Use
  Company Number: None

PATIENT
  Age: 78 Year
  Sex: Male
  Weight: 90 kg

DRUGS (2)
  1. TAXOTERE [Suspect]
     Active Substance: DOCETAXEL
     Dates: end: 20080703
  2. CASODEX [Suspect]
     Active Substance: BICALUTAMIDE
     Dates: end: 20080206

REACTIONS (2)
  - Vascular stent occlusion [None]
  - Acute myocardial infarction [None]

NARRATIVE: CASE EVENT DATE: 20160408
